FAERS Safety Report 20677512 (Version 15)
Quarter: 2024Q1

REPORT INFORMATION
  Report Type: Report from Study
  Country: US (occurrence: US)
  Receive Date: 20220406
  Receipt Date: 20240208
  Transmission Date: 20240410
  Serious: Yes (Other)
  Sender: FDA-Public Use
  Company Number: US-GW PHARMA-202201USGW00225

PATIENT
  Age: 69 Year
  Sex: Female
  Weight: 71.7 kg

DRUGS (90)
  1. EPIDIOLEX [Suspect]
     Active Substance: CANNABIDIOL
     Indication: Partial seizures
     Dosage: 2.79MG/KG/DAY, 100 MILLIGRAM, BID (WEEK 1 AND 2)
     Route: 048
     Dates: start: 20211111, end: 20211125
  2. EPIDIOLEX [Suspect]
     Active Substance: CANNABIDIOL
     Indication: Epilepsy
     Dosage: 4.18 MG/KG/DAY,150 MILLIGRAM,BID (WEEKS 3 AND 4)
     Route: 048
     Dates: start: 20211126
  3. EPIDIOLEX [Suspect]
     Active Substance: CANNABIDIOL
     Indication: Seizure
     Dosage: 6.97 MG/KG/DAY, 250 MILLIGRAM, BID
     Route: 048
  4. EPIDIOLEX [Suspect]
     Active Substance: CANNABIDIOL
     Indication: Simple partial seizures
     Dosage: 2.5 MILLILITER, BID
     Route: 048
     Dates: start: 20211111
  5. EPIDIOLEX [Suspect]
     Active Substance: CANNABIDIOL
     Dosage: 2.5 MILLILITER, BID
     Route: 048
     Dates: start: 20211111
  6. EPIDIOLEX [Suspect]
     Active Substance: CANNABIDIOL
     Dosage: 2.5 MILLILITER, BID
     Route: 048
     Dates: start: 20211111
  7. BRIVIACT [Suspect]
     Active Substance: BRIVARACETAM
     Indication: Seizure
     Dosage: 100 MILLIGRAM
  8. BRIVIACT [Suspect]
     Active Substance: BRIVARACETAM
     Dosage: 50 MILLIGRAM
  9. VESICARE [Concomitant]
     Active Substance: SOLIFENACIN SUCCINATE
     Indication: Product used for unknown indication
     Dosage: UNK
  10. VESICARE [Concomitant]
     Active Substance: SOLIFENACIN SUCCINATE
     Dosage: UNK
  11. VESICARE [Concomitant]
     Active Substance: SOLIFENACIN SUCCINATE
     Dosage: UNK
  12. VESICARE [Concomitant]
     Active Substance: SOLIFENACIN SUCCINATE
     Dosage: UNK
  13. VESICARE [Concomitant]
     Active Substance: SOLIFENACIN SUCCINATE
     Dosage: UNK
  14. VESICARE [Concomitant]
     Active Substance: SOLIFENACIN SUCCINATE
     Dosage: UNK
  15. VESICARE [Concomitant]
     Active Substance: SOLIFENACIN SUCCINATE
     Dosage: UNK
  16. VESICARE [Concomitant]
     Active Substance: SOLIFENACIN SUCCINATE
     Dosage: UNK
  17. VESICARE [Concomitant]
     Active Substance: SOLIFENACIN SUCCINATE
     Dosage: UNK
  18. VESICARE [Concomitant]
     Active Substance: SOLIFENACIN SUCCINATE
     Dosage: UNK
  19. VESICARE [Concomitant]
     Active Substance: SOLIFENACIN SUCCINATE
     Dosage: UNK
  20. VESICARE [Concomitant]
     Active Substance: SOLIFENACIN SUCCINATE
     Dosage: UNK
  21. VESICARE [Concomitant]
     Active Substance: SOLIFENACIN SUCCINATE
     Dosage: UNK
  22. VESICARE [Concomitant]
     Active Substance: SOLIFENACIN SUCCINATE
     Dosage: UNK
  23. VESICARE [Concomitant]
     Active Substance: SOLIFENACIN SUCCINATE
     Dosage: UNK
  24. VESICARE [Concomitant]
     Active Substance: SOLIFENACIN SUCCINATE
     Dosage: UNK
  25. VITAMIN D NOS [Concomitant]
     Active Substance: VITAMIN D NOS
     Indication: Product used for unknown indication
     Dosage: UNK
  26. VITAMIN D NOS [Concomitant]
     Active Substance: VITAMIN D NOS
     Dosage: UNK
  27. VITAMIN D NOS [Concomitant]
     Active Substance: VITAMIN D NOS
     Dosage: UNK
  28. VITAMIN D NOS [Concomitant]
     Active Substance: VITAMIN D NOS
     Dosage: UNK
  29. VITAMIN D NOS [Concomitant]
     Active Substance: VITAMIN D NOS
     Dosage: UNK
  30. VITAMIN D NOS [Concomitant]
     Active Substance: VITAMIN D NOS
     Dosage: UNK
  31. VITAMIN D NOS [Concomitant]
     Active Substance: VITAMIN D NOS
     Dosage: UNK
  32. VITAMIN D NOS [Concomitant]
     Active Substance: VITAMIN D NOS
     Dosage: UNK
  33. VITAMIN D NOS [Concomitant]
     Active Substance: VITAMIN D NOS
     Dosage: UNK
  34. VITAMIN D NOS [Concomitant]
     Active Substance: VITAMIN D NOS
     Dosage: UNK
  35. VITAMIN D NOS [Concomitant]
     Active Substance: VITAMIN D NOS
     Dosage: UNK
  36. VITAMIN D NOS [Concomitant]
     Active Substance: VITAMIN D NOS
     Dosage: UNK
  37. VITAMIN D NOS [Concomitant]
     Active Substance: VITAMIN D NOS
     Dosage: UNK
  38. VITAMIN D NOS [Concomitant]
     Active Substance: VITAMIN D NOS
     Dosage: UNK
  39. VITAMIN D NOS [Concomitant]
     Active Substance: VITAMIN D NOS
     Dosage: UNK
  40. VITAMIN D NOS [Concomitant]
     Active Substance: VITAMIN D NOS
     Dosage: UNK
  41. CALCIUM [Concomitant]
     Active Substance: CALCIUM
     Indication: Product used for unknown indication
     Dosage: UNK
  42. CALCIUM [Concomitant]
     Active Substance: CALCIUM
     Dosage: UNK
  43. CALCIUM [Concomitant]
     Active Substance: CALCIUM
     Dosage: UNK
  44. CALCIUM [Concomitant]
     Active Substance: CALCIUM
     Dosage: UNK
  45. CALCIUM [Concomitant]
     Active Substance: CALCIUM
     Dosage: UNK
  46. CALCIUM [Concomitant]
     Active Substance: CALCIUM
     Dosage: UNK
  47. CALCIUM [Concomitant]
     Active Substance: CALCIUM
     Dosage: UNK
  48. CALCIUM [Concomitant]
     Active Substance: CALCIUM
     Dosage: UNK
  49. CALCIUM [Concomitant]
     Active Substance: CALCIUM
     Dosage: UNK
  50. CALCIUM [Concomitant]
     Active Substance: CALCIUM
     Dosage: UNK
  51. CALCIUM [Concomitant]
     Active Substance: CALCIUM
     Dosage: UNK
  52. CALCIUM [Concomitant]
     Active Substance: CALCIUM
     Dosage: UNK
  53. CALCIUM [Concomitant]
     Active Substance: CALCIUM
     Dosage: UNK
  54. CALCIUM [Concomitant]
     Active Substance: CALCIUM
     Dosage: UNK
  55. CALCIUM [Concomitant]
     Active Substance: CALCIUM
     Dosage: UNK
  56. CALCIUM [Concomitant]
     Active Substance: CALCIUM
     Dosage: UNK
  57. BIOTIN [Concomitant]
     Active Substance: BIOTIN
     Indication: Product used for unknown indication
     Dosage: UNK
  58. BIOTIN [Concomitant]
     Active Substance: BIOTIN
     Dosage: UNK
  59. BIOTIN [Concomitant]
     Active Substance: BIOTIN
     Dosage: UNK
  60. BIOTIN [Concomitant]
     Active Substance: BIOTIN
     Dosage: UNK
  61. BIOTIN [Concomitant]
     Active Substance: BIOTIN
     Dosage: UNK
  62. BIOTIN [Concomitant]
     Active Substance: BIOTIN
     Dosage: UNK
  63. BIOTIN [Concomitant]
     Active Substance: BIOTIN
     Dosage: UNK
  64. BIOTIN [Concomitant]
     Active Substance: BIOTIN
     Dosage: UNK
  65. BIOTIN [Concomitant]
     Active Substance: BIOTIN
     Dosage: UNK
  66. BIOTIN [Concomitant]
     Active Substance: BIOTIN
     Dosage: UNK
  67. BIOTIN [Concomitant]
     Active Substance: BIOTIN
     Dosage: UNK
  68. BIOTIN [Concomitant]
     Active Substance: BIOTIN
     Dosage: UNK
  69. BIOTIN [Concomitant]
     Active Substance: BIOTIN
     Dosage: UNK
  70. BIOTIN [Concomitant]
     Active Substance: BIOTIN
     Dosage: UNK
  71. BIOTIN [Concomitant]
     Active Substance: BIOTIN
     Dosage: UNK
  72. BIOTIN [Concomitant]
     Active Substance: BIOTIN
     Dosage: UNK
  73. LAMOTRIGINE [Concomitant]
     Active Substance: LAMOTRIGINE
     Indication: Seizure
     Dosage: 100 MILLIGRAM
  74. LAMOTRIGINE [Concomitant]
     Active Substance: LAMOTRIGINE
     Indication: Epilepsy
     Dosage: 25 MILLIGRAM
  75. ONFI [Concomitant]
     Active Substance: CLOBAZAM
     Indication: Seizure
     Dosage: UNK
  76. ONFI [Concomitant]
     Active Substance: CLOBAZAM
     Dosage: UNK
  77. ONFI [Concomitant]
     Active Substance: CLOBAZAM
     Dosage: UNK
  78. ONFI [Concomitant]
     Active Substance: CLOBAZAM
     Dosage: UNK
  79. ONFI [Concomitant]
     Active Substance: CLOBAZAM
     Dosage: UNK
  80. ONFI [Concomitant]
     Active Substance: CLOBAZAM
     Dosage: UNK
  81. ONFI [Concomitant]
     Active Substance: CLOBAZAM
     Dosage: UNK
  82. ONFI [Concomitant]
     Active Substance: CLOBAZAM
     Dosage: UNK
  83. ONFI [Concomitant]
     Active Substance: CLOBAZAM
     Dosage: UNK
  84. ONFI [Concomitant]
     Active Substance: CLOBAZAM
     Dosage: UNK
  85. ONFI [Concomitant]
     Active Substance: CLOBAZAM
     Dosage: UNK
  86. ONFI [Concomitant]
     Active Substance: CLOBAZAM
     Dosage: UNK
  87. ONFI [Concomitant]
     Active Substance: CLOBAZAM
     Dosage: UNK
  88. ONFI [Concomitant]
     Active Substance: CLOBAZAM
     Dosage: UNK
  89. ONFI [Concomitant]
     Active Substance: CLOBAZAM
     Dosage: UNK
  90. ONFI [Concomitant]
     Active Substance: CLOBAZAM
     Dosage: UNK

REACTIONS (26)
  - Seizure [Unknown]
  - Seizure [Unknown]
  - Seizure [Recovered/Resolved]
  - Seizure [Unknown]
  - Product supply issue [Unknown]
  - Accidental overdose [Unknown]
  - Product dose omission issue [Unknown]
  - Dry mouth [Not Recovered/Not Resolved]
  - Fatigue [Not Recovered/Not Resolved]
  - Diarrhoea [Recovering/Resolving]
  - Abdominal discomfort [Unknown]
  - Musculoskeletal discomfort [Unknown]
  - Illness [Unknown]
  - Anal incontinence [Unknown]
  - Osteoporosis [Unknown]
  - Therapy interrupted [Unknown]
  - Syringe issue [Unknown]
  - Stress [Not Recovered/Not Resolved]
  - Product container seal issue [Unknown]
  - Product use in unapproved indication [Unknown]
  - Product dose omission issue [Unknown]
  - Incorrect dose administered [Unknown]
  - Product administration interrupted [Unknown]
  - Decreased appetite [Unknown]
  - Product packaging issue [Unknown]
  - Product packaging quantity issue [Unknown]

NARRATIVE: CASE EVENT DATE: 20211224
